FAERS Safety Report 24900411 (Version 1)
Quarter: 2025Q1

REPORT INFORMATION
  Report Type: Spontaneous
  Country: US (occurrence: None)
  Receive Date: 20250128
  Receipt Date: 20250128
  Transmission Date: 20250409
  Serious: Yes (Hospitalization)
  Sender: FDA-CTU
  Company Number: None

PATIENT
  Age: 61 Year
  Sex: Male

DRUGS (1)
  1. FEBUXOSTAT [Suspect]
     Active Substance: FEBUXOSTAT
     Indication: Gout
     Dates: start: 20240213, end: 20240622

REACTIONS (9)
  - Acute kidney injury [None]
  - Rhabdomyolysis [None]
  - Vomiting [None]
  - Acute kidney injury [None]
  - Renal tubular necrosis [None]
  - Diarrhoea [None]
  - Hypophagia [None]
  - Nausea [None]
  - Liver function test increased [None]

NARRATIVE: CASE EVENT DATE: 20240622
